FAERS Safety Report 15128906 (Version 1)
Quarter: 2018Q3

REPORT INFORMATION
  Report Type: Spontaneous
  Country: US (occurrence: US)
  Receive Date: 20180614
  Receipt Date: 20180614
  Transmission Date: 20181010
  Serious: Yes (Other)
  Sender: FDA-Public Use
  Company Number: None

PATIENT
  Age: 50 Year
  Sex: Female
  Weight: 74.25 kg

DRUGS (8)
  1. GADOLINIUM CONTRAST AGENT [Suspect]
     Active Substance: GADOLINIUM
     Indication: NUCLEAR MAGNETIC RESONANCE IMAGING
     Route: 042
     Dates: start: 20180611, end: 20180611
  2. VITAMINS [Concomitant]
     Active Substance: VITAMINS
  3. FISH OIL [Concomitant]
     Active Substance: FISH OIL
  4. MULTI [Concomitant]
  5. VITAMIN D [Concomitant]
     Active Substance: CHOLECALCIFEROL
  6. K2 [Concomitant]
     Active Substance: JWH-018
  7. PROBIOTICS [Concomitant]
     Active Substance: PROBIOTICS NOS
  8. LDN [Concomitant]
     Active Substance: NALTREXONE

REACTIONS (3)
  - Neuropathy peripheral [None]
  - Drug hypersensitivity [None]
  - Vertigo [None]

NARRATIVE: CASE EVENT DATE: 20180611
